FAERS Safety Report 8448770-X (Version None)
Quarter: 2012Q2

REPORT INFORMATION
  Report Type: 
  Country: None (occurrence: None)
  Receive Date: 20120613
  Receipt Date: 20120529
  Transmission Date: 20120825
  Serious: Yes (Life-Threatening, Hospitalization)
  Sender: FDA-Public Use
  Company Number: DSU-2012-04422

PATIENT
  Age: 66 Year
  Sex: Female

DRUGS (5)
  1. LOVAZA [Concomitant]
  2. OLMESARTAN MEDOXOMIL AND HYDROCHLOROTHIZIDE [Suspect]
     Indication: HYPERTENSION
     Dosage: 40/12.5 MG (QD), PER ORAL
     Route: 048
     Dates: start: 20100101
  3. DOLEX (PARACETAMOL) [Concomitant]
  4. CARDIOSAWIN (ACETYLSALICYLIC ACID) [Concomitant]
  5. ZOLPIDEM [Concomitant]

REACTIONS (4)
  - PLATELET COUNT DECREASED [None]
  - GALLBLADDER OPERATION [None]
  - MALAISE [None]
  - WHITE BLOOD CELL COUNT DECREASED [None]
